FAERS Safety Report 23440990 (Version 2)
Quarter: 2024Q1

REPORT INFORMATION
  Report Type: Spontaneous
  Country: US (occurrence: US)
  Receive Date: 20240125
  Receipt Date: 20240212
  Transmission Date: 20240409
  Serious: Yes (Death, Hospitalization, Other)
  Sender: FDA-Public Use
  Company Number: US-BoehringerIngelheim-2024-BI-004370

PATIENT
  Sex: Male

DRUGS (1)
  1. SPEVIGO [Suspect]
     Active Substance: SPESOLIMAB-SBZO
     Indication: Pustular psoriasis
     Dosage: 1 INFUSION 900 MG
     Dates: start: 20231114

REACTIONS (11)
  - Pneumonia [Fatal]
  - Pneumonia aspiration [Unknown]
  - Deep vein thrombosis [Unknown]
  - Respiratory failure [Unknown]
  - Acute respiratory distress syndrome [Unknown]
  - Delirium [Unknown]
  - Cardiac failure [Unknown]
  - Sepsis [Unknown]
  - Supraventricular tachycardia [Unknown]
  - Anaemia [Unknown]
  - Electrolyte imbalance [Unknown]
